FAERS Safety Report 5734533-2 (Version None)
Quarter: 2008Q2

REPORT INFORMATION
  Report Type: 
  Country: None (occurrence: None)
  Receive Date: 20080508
  Receipt Date: 20080508
  Transmission Date: 20081010
  Serious: No
  Sender: FDA-Public Use
  Company Number: None

PATIENT
  Age: 66 Year
  Sex: Female
  Weight: 85.2762 kg

DRUGS (1)
  1. CREST PRO HEALTH TOOTHPASTE [Suspect]
     Dosage: TWICE DAILY
     Dates: start: 20080401, end: 20080414

REACTIONS (2)
  - ORAL PAIN [None]
  - SENSITIVITY OF TEETH [None]
